FAERS Safety Report 21523325 (Version 1)
Quarter: 2022Q4

REPORT INFORMATION
  Report Type: Spontaneous
  Country: US (occurrence: US)
  Receive Date: 20221029
  Receipt Date: 20221029
  Transmission Date: 20230113
  Serious: No
  Sender: FDA-Public Use
  Company Number: US-JNJFOC-20221051940

PATIENT
  Age: 4 Decade
  Sex: Male

DRUGS (1)
  1. ERLEADA [Suspect]
     Active Substance: APALUTAMIDE
     Indication: Product used for unknown indication
     Dosage: 60MG TAB TAKE 4 TABLETS
     Route: 048
     Dates: start: 20200407

REACTIONS (1)
  - Fall [Unknown]
